FAERS Safety Report 22917487 (Version 5)
Quarter: 2023Q4

REPORT INFORMATION
  Report Type: Report from Study
  Country: US (occurrence: US)
  Receive Date: 20230907
  Receipt Date: 20231124
  Transmission Date: 20240110
  Serious: No
  Sender: FDA-Public Use
  Company Number: US-BIOGEN-2023BI01224099

PATIENT
  Age: 82 Year
  Sex: Male
  Weight: 75.9 kg

DRUGS (10)
  1. ADUCANUMAB [Suspect]
     Active Substance: ADUCANUMAB
     Indication: Dementia Alzheimer^s type
     Dosage: TITRATION PERIOD
     Route: 050
     Dates: start: 20221102, end: 20221102
  2. ADUCANUMAB [Suspect]
     Active Substance: ADUCANUMAB
     Dosage: TITRATION PERIOD
     Route: 050
     Dates: start: 20221129, end: 20221129
  3. ADUCANUMAB [Suspect]
     Active Substance: ADUCANUMAB
     Dosage: TITRATION PERIOD
     Route: 050
     Dates: start: 20230104, end: 20230104
  4. ADUCANUMAB [Suspect]
     Active Substance: ADUCANUMAB
     Dosage: TITRATION PERIOD
     Route: 050
     Dates: start: 20230126, end: 20230126
  5. ADUCANUMAB [Suspect]
     Active Substance: ADUCANUMAB
     Dosage: TITRATION PERIOD
     Route: 050
     Dates: start: 20230323, end: 20230323
  6. ADUCANUMAB [Suspect]
     Active Substance: ADUCANUMAB
     Dosage: TITRATION PERIOD
     Route: 050
     Dates: start: 20230419, end: 20230419
  7. ADUCANUMAB [Suspect]
     Active Substance: ADUCANUMAB
     Dosage: MAINTENANCE PERIOD
     Route: 050
     Dates: start: 20230518
  8. AMLODIPINE [Concomitant]
     Active Substance: AMLODIPINE BESYLATE
     Indication: Hypertensive heart disease
     Route: 050
     Dates: start: 2012
  9. LISINOPRIL [Concomitant]
     Active Substance: LISINOPRIL
     Indication: Hypertensive heart disease
     Route: 050
     Dates: start: 2012
  10. MEMANTINE [Concomitant]
     Active Substance: MEMANTINE
     Indication: Dementia Alzheimer^s type
     Route: 050
     Dates: start: 20220303

REACTIONS (1)
  - Amyloid related imaging abnormality-microhaemorrhages and haemosiderin deposits [Unknown]

NARRATIVE: CASE EVENT DATE: 20230824
